FAERS Safety Report 8137330-6 (Version None)
Quarter: 2012Q1

REPORT INFORMATION
  Report Type: 
  Country: None (occurrence: None)
  Receive Date: 20120103
  Receipt Date: 20110914
  Transmission Date: 20120608
  Serious: No
  Sender: FDA-Public Use
  Company Number: AE-2011-001542

PATIENT
  Age: 58 Year
  Sex: Female
  Weight: 55.3 kg

DRUGS (3)
  1. INCIVEK [Suspect]
     Dates: start: 20110901
  2. PEGASYS [Concomitant]
  3. RIBAPAK (RIBAVIRIN) [Concomitant]

REACTIONS (1)
  - ANORECTAL DISORDER [None]
